FAERS Safety Report 9034308 (Version 1)
Quarter: 2013Q1

REPORT INFORMATION
  Report Type: Spontaneous
  Country: US (occurrence: None)
  Receive Date: 20130116
  Receipt Date: 20130116
  Transmission Date: 20140127
  Serious: Yes (Other)
  Sender: FDA-Public Use
  Company Number: None

PATIENT
  Age: 71 Year
  Sex: Male
  Weight: 95.26 kg

DRUGS (9)
  1. OXCARBAZEPINE [Suspect]
     Dosage: ONE TAB
     Route: 048
     Dates: start: 20121207, end: 20130115
  2. OXCARBAZEPINE [Suspect]
     Dosage: ONE TAB
     Route: 048
  3. BACLOFEN [Concomitant]
  4. CARBOXYMETH [Concomitant]
  5. TAMSULOSIN [Concomitant]
  6. AVONEX [Concomitant]
  7. ROSUVASTATIN [Concomitant]
  8. AMLODAPINE [Concomitant]
  9. SILDENAFIL [Concomitant]

REACTIONS (3)
  - Drug effect decreased [None]
  - Breakthrough pain [None]
  - Product substitution issue [None]
